FAERS Safety Report 22162984 (Version 1)
Quarter: 2023Q2

REPORT INFORMATION
  Report Type: Spontaneous
  Country: US (occurrence: US)
  Receive Date: 20230401
  Receipt Date: 20230401
  Transmission Date: 20230721
  Serious: Yes (Hospitalization, Other)
  Sender: FDA-Public Use
  Company Number: US-AUROBINDO-AUR-APL-2023-013742

PATIENT
  Age: 28 Year
  Sex: Female

DRUGS (26)
  1. CYCLOPHOSPHAMIDE [Suspect]
     Active Substance: CYCLOPHOSPHAMIDE
     Indication: Chemotherapy
     Dosage: 187 MILLIGRAM/SQ. METER, EVERY WEEK (CYCLE 1)
     Route: 065
  2. CYCLOPHOSPHAMIDE [Suspect]
     Active Substance: CYCLOPHOSPHAMIDE
     Dosage: 377 MILLIGRAM/SQ. METER, EVERY WEEK (CYCLE 2)
     Route: 065
  3. CYCLOPHOSPHAMIDE [Suspect]
     Active Substance: CYCLOPHOSPHAMIDE
     Dosage: 400 MILLIGRAM/SQ. METER, EVERY WEEK (CYCLE 3)
     Route: 065
  4. CYCLOPHOSPHAMIDE [Suspect]
     Active Substance: CYCLOPHOSPHAMIDE
     Dosage: 562 MILLIGRAM/SQ. METER, EVERY WEEK (CYCLE 4)
     Route: 065
  5. CYCLOPHOSPHAMIDE [Suspect]
     Active Substance: CYCLOPHOSPHAMIDE
     Dosage: 364 MILLIGRAM/SQ. METER, EVERY WEEK (CYCLE 5)
     Route: 065
  6. CYCLOPHOSPHAMIDE [Suspect]
     Active Substance: CYCLOPHOSPHAMIDE
     Dosage: 242 MILLIGRAM/SQ. METER, EVERY WEEK (CYCLE 6)
     Route: 065
  7. METHOTREXATE [Suspect]
     Active Substance: METHOTREXATE
     Indication: Chemotherapy
     Dosage: 3.5 GRAM PER SQUARE METRE (CYCLE 5)
     Route: 065
  8. DOXORUBICIN [Suspect]
     Active Substance: DOXORUBICIN
     Indication: Chemotherapy
     Dosage: 7 MILLIGRAM/SQ. METER, EVERY WEEK (CYCLE 1)
     Route: 065
  9. DOXORUBICIN [Suspect]
     Active Substance: DOXORUBICIN
     Dosage: 7 MILLIGRAM/SQ. METER, EVERY WEEK (CYCLE 2)
     Route: 065
  10. DOXORUBICIN [Suspect]
     Active Substance: DOXORUBICIN
     Dosage: 10 MILLIGRAM/SQ. METER, EVERY WEEK  (CYCLE 3)
     Route: 065
  11. DOXORUBICIN [Suspect]
     Active Substance: DOXORUBICIN
     Dosage: 10 MILLIGRAM/SQ. METER, EVERY WEEK  (CYCLE 4)
     Route: 065
  12. DOXORUBICIN [Suspect]
     Active Substance: DOXORUBICIN
     Dosage: 7 MILLIGRAM/SQ. METER, EVERY WEEK  (CYCLE 5)
     Route: 065
  13. DOXORUBICIN [Suspect]
     Active Substance: DOXORUBICIN
     Dosage: 7 MILLIGRAM/SQ. METER, EVERY WEEK  (CYCLE 6)
     Route: 065
  14. ETOPOSIDE [Suspect]
     Active Substance: ETOPOSIDE
     Indication: Chemotherapy
     Dosage: 30 MILLIGRAM/SQ. METER, EVERY WEEK (CYCLE 1)
     Route: 065
  15. ETOPOSIDE [Suspect]
     Active Substance: ETOPOSIDE
     Dosage: 37 MILLIGRAM/SQ. METER, EVERY WEEK (CYCLE 2)
     Route: 065
  16. ETOPOSIDE [Suspect]
     Active Substance: ETOPOSIDE
     Dosage: 50 MILLIGRAM/SQ. METER, EVERY WEEK (CYCLE 3)
     Route: 065
  17. ETOPOSIDE [Suspect]
     Active Substance: ETOPOSIDE
     Dosage: 50 MILLIGRAM/SQ. METER, EVERY WEEK (CYCLE 4)
     Route: 065
  18. ETOPOSIDE [Suspect]
     Active Substance: ETOPOSIDE
     Dosage: 50 MILLIGRAM/SQ. METER, EVERY WEEK (CYCLE 5)
     Route: 065
  19. ETOPOSIDE [Suspect]
     Active Substance: ETOPOSIDE
     Dosage: 40 MILLIGRAM/SQ. METER, EVERY WEEK (CYCLE 6)
     Route: 065
  20. DARATUMUMAB [Suspect]
     Active Substance: DARATUMUMAB
     Indication: Chemotherapy
     Dosage: 16 MILLIGRAM/KILOGRAM, EVERY WEEK (CYCLE 1)
     Route: 065
  21. DARATUMUMAB [Suspect]
     Active Substance: DARATUMUMAB
     Dosage: 16 MILLIGRAM/KILOGRAM, EVERY WEEK (CYCLE 2
     Route: 065
  22. DARATUMUMAB [Suspect]
     Active Substance: DARATUMUMAB
     Dosage: 16 MILLIGRAM/KILOGRAM, EVERY WEEK (CYCLE 3
     Route: 065
  23. DARATUMUMAB [Suspect]
     Active Substance: DARATUMUMAB
     Dosage: 16 MILLIGRAM/KILOGRAM, EVERY WEEK (CYCLE 4
     Route: 065
  24. DARATUMUMAB [Suspect]
     Active Substance: DARATUMUMAB
     Dosage: 16 MILLIGRAM/KILOGRAM, EVERY WEEK (CYCLE 5
     Route: 065
  25. DARATUMUMAB [Suspect]
     Active Substance: DARATUMUMAB
     Dosage: 16 MILLIGRAM/KILOGRAM, EVERY WEEK (CYCLE 6
     Route: 065
  26. RITUXIMAB [Suspect]
     Active Substance: RITUXIMAB
     Indication: Chemotherapy
     Dosage: 550 MILLIGRAM, EVERY WEEK
     Route: 065

REACTIONS (3)
  - Febrile neutropenia [Unknown]
  - Deep vein thrombosis [Unknown]
  - Pulmonary embolism [Unknown]
